FAERS Safety Report 4937174-X (Version None)
Quarter: 2006Q1

REPORT INFORMATION
  Report Type: 
  Country: None (occurrence: None)
  Receive Date: 20060307
  Receipt Date: 20060307
  Transmission Date: 20060701
  Serious: Yes (Disabling)
  Sender: FDA-Public Use
  Company Number: None

PATIENT
  Age: 42 Year
  Sex: Female
  Weight: 56.6996 kg

DRUGS (1)
  1. BALANCED SALT SOLUTION [Suspect]
     Indication: SURGERY
     Dosage: 18ML OPHTHALMIC
     Route: 047

REACTIONS (2)
  - KERATITIS [None]
  - POST PROCEDURAL COMPLICATION [None]
